FAERS Safety Report 23788768 (Version 1)
Quarter: 2024Q2

REPORT INFORMATION
  Report Type: Spontaneous
  Country: RU (occurrence: None)
  Receive Date: 20240426
  Receipt Date: 20240426
  Transmission Date: 20240716
  Serious: Yes (Other)
  Sender: FDA-Public Use
  Company Number: RU-ROCHE-3550730

PATIENT
  Age: 34 Year
  Sex: Male

DRUGS (3)
  1. EMICIZUMAB [Suspect]
     Active Substance: EMICIZUMAB
     Indication: Haemophilia A without inhibitors
     Dosage: 3 MG/KG ONCE WEEKLY FOR 1-4 WEEKS THEN 1.5MG/KG ONCE WEEKLY FROM WEEK 5.
     Route: 058
     Dates: start: 20230409
  2. ANTIHEMOPHILIC FACTOR HUMAN [Concomitant]
     Active Substance: ANTIHEMOPHILIC FACTOR HUMAN
     Indication: Arthralgia
  3. ANTIHEMOPHILIC FACTOR HUMAN [Concomitant]
     Active Substance: ANTIHEMOPHILIC FACTOR HUMAN
     Dosage: 30-40 IU/KG/DOSE

REACTIONS (3)
  - Ligament operation [Unknown]
  - Exostosis [Unknown]
  - Osteotomy [Unknown]

NARRATIVE: CASE EVENT DATE: 20230926
